FAERS Safety Report 9610912 (Version 1)
Quarter: 2013Q4

REPORT INFORMATION
  Report Type: Spontaneous
  Country: US (occurrence: US)
  Receive Date: 20131009
  Receipt Date: 20131009
  Transmission Date: 20140711
  Serious: Yes (Disabling, Other)
  Sender: FDA-Public Use
  Company Number: US-ELI_LILLY_AND_COMPANY-US201310000914

PATIENT
  Sex: Female

DRUGS (4)
  1. HUMALOG 50% LISPRO, 50% NPL [Suspect]
     Indication: TYPE 2 DIABETES MELLITUS
     Dosage: 15 U, EACH MORNING
     Dates: start: 2011
  2. HUMALOG 50% LISPRO, 50% NPL [Suspect]
     Dosage: 7 U, EACH EVENING
     Dates: start: 2011
  3. BYETTA [Concomitant]
  4. METFORMIN [Concomitant]

REACTIONS (7)
  - Syncope [Unknown]
  - Fall [Unknown]
  - Abasia [Not Recovered/Not Resolved]
  - Glaucoma [Not Recovered/Not Resolved]
  - Ingrowing nail [Unknown]
  - Blood glucose increased [Unknown]
  - Incorrect dose administered [Unknown]
